FAERS Safety Report 14538633 (Version 1)
Quarter: 2018Q1

REPORT INFORMATION
  Report Type: Other
  Country: GB (occurrence: GB)
  Receive Date: 20180216
  Receipt Date: 20180216
  Transmission Date: 20180509
  Serious: Yes (Other)
  Sender: FDA-Public Use
  Company Number: GB-MACLEODS PHARMACEUTICALS US LTD-MAC2018009801

PATIENT

DRUGS (2)
  1. TAMSULOSIN [Suspect]
     Active Substance: TAMSULOSIN
     Indication: PROSTATOMEGALY
     Dosage: 400 ?G, QD
     Route: 048
     Dates: start: 20171130, end: 20171215
  2. ATORVASTATIN [Concomitant]
     Active Substance: ATORVASTATIN
     Indication: PRODUCT USED FOR UNKNOWN INDICATION
     Dosage: 20 MG, QD
     Route: 065

REACTIONS (3)
  - Pruritus generalised [Not Recovered/Not Resolved]
  - Erythema [Not Recovered/Not Resolved]
  - Papule [Not Recovered/Not Resolved]

NARRATIVE: CASE EVENT DATE: 20171210
